FAERS Safety Report 20688231 (Version 1)
Quarter: 2022Q2

REPORT INFORMATION
  Report Type: Spontaneous
  Country: HR (occurrence: HR)
  Receive Date: 20220408
  Receipt Date: 20220408
  Transmission Date: 20220721
  Serious: Yes (Other)
  Sender: FDA-Public Use
  Company Number: HR-CELLTRION INC.-2022HR003899

PATIENT

DRUGS (6)
  1. RITUXIMAB [Suspect]
     Active Substance: RITUXIMAB
     Indication: Non-Hodgkin^s lymphoma
     Dosage: UNK
  2. RITUXIMAB [Suspect]
     Active Substance: RITUXIMAB
     Dosage: LAST DOSE
     Dates: start: 20160629
  3. BISOPROLOL [Concomitant]
     Active Substance: BISOPROLOL
     Dosage: 1X2.5 MG
  4. MOXONIDINE [Concomitant]
     Active Substance: MOXONIDINE
     Dosage: 1X0.4 MG
  5. LERCANIDIPINE HYDROCHLORIDE [Concomitant]
     Active Substance: LERCANIDIPINE HYDROCHLORIDE
     Dosage: 1X10 MG
  6. FUROSEMIDE [Concomitant]
     Active Substance: FUROSEMIDE
     Dosage: 1X40 MG

REACTIONS (4)
  - Pyelonephritis [Unknown]
  - Strongyloidiasis [Unknown]
  - Proteus infection [Unknown]
  - Off label use [Unknown]
